FAERS Safety Report 6616775-7 (Version None)
Quarter: 2010Q1

REPORT INFORMATION
  Report Type: 
  Country: None (occurrence: None)
  Receive Date: 20100301
  Receipt Date: 20100219
  Transmission Date: 20100710
  Serious: Yes (Hospitalization)
  Sender: FDA-Public Use
  Company Number: 2010SP011708

PATIENT
  Age: 26 Year
  Sex: Female
  Weight: 62.1428 kg

DRUGS (3)
  1. IMPLANON [Suspect]
     Indication: DRUG USE FOR UNKNOWN INDICATION
     Dosage: 1 DF
     Dates: start: 20091223
  2. LOPID [Concomitant]
  3. VICODIN [Concomitant]

REACTIONS (5)
  - HYPOAESTHESIA [None]
  - IMPLANT SITE PRURITUS [None]
  - IMPLANT SITE RASH [None]
  - PAIN IN EXTREMITY [None]
  - PANCREATITIS [None]
